FAERS Safety Report 10445137 (Version 1)
Quarter: 2014Q3

REPORT INFORMATION
  Report Type: Spontaneous
  Country: US (occurrence: US)
  Receive Date: 20140910
  Receipt Date: 20140910
  Transmission Date: 20150326
  Serious: No
  Sender: FDA-Public Use
  Company Number: US-PFIZER INC-2014248926

PATIENT
  Sex: Male

DRUGS (2)
  1. LYRICA [Suspect]
     Active Substance: PREGABALIN
     Indication: SMALL FIBRE NEUROPATHY
     Dosage: 75 MG, UNK
     Dates: start: 201409
  2. TRAMADOL [Concomitant]
     Active Substance: TRAMADOL
     Indication: SMALL FIBRE NEUROPATHY
     Dosage: 100 MG(EVERY NIGHT), 1X/DAY
     Dates: end: 201409

REACTIONS (2)
  - Nervousness [Unknown]
  - Somnolence [Unknown]

NARRATIVE: CASE EVENT DATE: 201409
